FAERS Safety Report 5565577-1 (Version None)
Quarter: 2007Q4

REPORT INFORMATION
  Report Type: 
  Country: None (occurrence: None)
  Receive Date: 20071218
  Receipt Date: 20060106
  Transmission Date: 20080405
  Serious: Yes (Death)
  Sender: FDA-Public Use
  Company Number: AR-ROCHE-431218

PATIENT
  Age: 51 Year
  Sex: Female

DRUGS (1)
  1. XELODA [Suspect]
     Indication: BREAST CANCER
     Dosage: STRENGTH REPORTED AS 150/500 MG.
     Route: 048
     Dates: start: 20050101, end: 20050101

REACTIONS (3)
  - DEATH [None]
  - DIARRHOEA [None]
  - MUCOSAL INFLAMMATION [None]
